FAERS Safety Report 9424157 (Version 1)
Quarter: 2013Q3

REPORT INFORMATION
  Report Type: Report from Study
  Country: PK (occurrence: PK)
  Receive Date: 20130729
  Receipt Date: 20130729
  Transmission Date: 20140515
  Serious: Yes (Death)
  Sender: FDA-Public Use
  Company Number: PHHY2013PK079997

PATIENT
  Age: 26 Year
  Sex: Male

DRUGS (1)
  1. GLIVEC [Suspect]
     Dosage: 400 MG, BID
     Route: 048
     Dates: start: 20120622, end: 20121113

REACTIONS (1)
  - Death [Fatal]
